FAERS Safety Report 17496503 (Version 1)
Quarter: 2020Q1

REPORT INFORMATION
  Report Type: Spontaneous
  Country: US (occurrence: US)
  Receive Date: 20200304
  Receipt Date: 20200304
  Transmission Date: 20200409
  Serious: Yes (Hospitalization)
  Sender: FDA-Public Use
  Company Number: None

PATIENT
  Age: 73 Year
  Sex: Female
  Weight: 63 kg

DRUGS (2)
  1. VERZENIO [Suspect]
     Active Substance: ABEMACICLIB
     Route: 048
  2. EXEMESTANE. [Suspect]
     Active Substance: EXEMESTANE
     Route: 048

REACTIONS (2)
  - Therapy cessation [None]
  - Hospitalisation [None]
